FAERS Safety Report 5206772-0 (Version None)
Quarter: 2006Q4

REPORT INFORMATION
  Report Type: 
  Country: None (occurrence: None)
  Receive Date: 20061031
  Receipt Date: 20051114
  Transmission Date: 20070319
  Serious: Yes (Hospitalization, Disabling)
  Sender: FDA-Public Use
  Company Number: HQWYE553115NOV05

PATIENT
  Age: 3 Year
  Sex: Male

DRUGS (1)
  1. RAPAMUNE [Suspect]

REACTIONS (2)
  - EPSTEIN-BARR VIRUS INFECTION [None]
  - PNEUMONITIS [None]
